FAERS Safety Report 13054518 (Version 4)
Quarter: 2017Q3

REPORT INFORMATION
  Report Type: Spontaneous
  Country: FR (occurrence: FR)
  Receive Date: 20161222
  Receipt Date: 20170731
  Transmission Date: 20171127
  Serious: Yes (Hospitalization)
  Sender: FDA-Public Use
  Company Number: FR-ABBVIE-16P-056-1815984-00

PATIENT
  Age: 92 Year
  Sex: Female
  Weight: 61 kg

DRUGS (5)
  1. AMOXICILLINE ALMUS [Suspect]
     Active Substance: AMOXICILLIN
     Indication: PNEUMONIA
     Route: 065
     Dates: start: 20161011, end: 20161017
  2. ARTELAC [Concomitant]
     Active Substance: HYPROMELLOSES
     Indication: PRODUCT USED FOR UNKNOWN INDICATION
  3. VALSARTAN. [Suspect]
     Active Substance: VALSARTAN
     Indication: PRODUCT USED FOR UNKNOWN INDICATION
     Route: 048
     Dates: end: 20161113
  4. CARBOCYSTEINE [Suspect]
     Active Substance: CARBOCYSTEINE
     Indication: PNEUMONIA
     Route: 065
     Dates: start: 20161011, end: 20161017
  5. LIPANTHYL [Suspect]
     Active Substance: FENOFIBRATE
     Indication: PRODUCT USED FOR UNKNOWN INDICATION
     Route: 048
     Dates: end: 20161113

REACTIONS (4)
  - Hepatitis [Unknown]
  - Cholecystitis acute [Unknown]
  - Cholestasis [Unknown]
  - Jaundice [Unknown]

NARRATIVE: CASE EVENT DATE: 20161113
